FAERS Safety Report 14859685 (Version 4)
Quarter: 2018Q3

REPORT INFORMATION
  Report Type: Spontaneous
  Country: US (occurrence: US)
  Receive Date: 20180508
  Receipt Date: 20180703
  Transmission Date: 20181010
  Serious: No
  Sender: FDA-Public Use
  Company Number: US-PFIZER INC-2018184408

PATIENT
  Age: 65 Year
  Sex: Male
  Weight: 69.4 kg

DRUGS (4)
  1. LYRICA [Suspect]
     Active Substance: PREGABALIN
     Indication: NEURALGIA
     Dosage: 50 MG, 1X/DAY (ONCE A DAY BY MOUTH FOR 3 DAYS,THEN TWICE A DAY FOR 3 DAYS , AND THEN 3 TIMES A DAY)
     Route: 048
     Dates: start: 20180428
  2. LYRICA [Suspect]
     Active Substance: PREGABALIN
     Dosage: 50 MG, 2X/DAY (ONCE A DAY BY MOUTH FOR 3 DAYS,THEN TWICE A DAY FOR 3 DAYS , AND THEN 3 TIMES A DAY)
     Route: 048
     Dates: start: 20180428
  3. LYRICA [Suspect]
     Active Substance: PREGABALIN
     Dosage: 50 MG, 3X/DAY ((ONCE A DAY BY MOUTH FOR 3 DAYS,THEN TWICE A DAY FOR 3 DAYS , AND THEN 3 TIMES A DAY)
     Route: 048
     Dates: start: 20180428
  4. LYRICA [Suspect]
     Active Substance: PREGABALIN
     Dosage: 50 MG, UNK (DAYS SUPPLY 30)

REACTIONS (8)
  - Drug ineffective [Not Recovered/Not Resolved]
  - Insomnia [Recovered/Resolved]
  - Dizziness [Unknown]
  - Fatigue [Unknown]
  - Constipation [Unknown]
  - Balance disorder [Not Recovered/Not Resolved]
  - Asthenia [Unknown]
  - Fall [Unknown]

NARRATIVE: CASE EVENT DATE: 20180428
